FAERS Safety Report 13139752 (Version 2)
Quarter: 2017Q2

REPORT INFORMATION
  Report Type: Spontaneous
  Country: US (occurrence: US)
  Receive Date: 20170123
  Receipt Date: 20170418
  Transmission Date: 20170830
  Serious: Yes (Hospitalization)
  Sender: FDA-Public Use
  Company Number: US-TEVA-730987USA

PATIENT
  Age: 92 Year
  Sex: Female
  Weight: 78 kg

DRUGS (3)
  1. LISINOPRIL. [Suspect]
     Active Substance: LISINOPRIL
     Indication: CEREBROVASCULAR ACCIDENT
     Dosage: 20 MILLIGRAM DAILY;
     Route: 065
     Dates: start: 201611
  2. LISINOPRIL. [Suspect]
     Active Substance: LISINOPRIL
     Dosage: 40 MILLIGRAM DAILY;
     Route: 065
     Dates: start: 2016
  3. LISINOPRIL. [Suspect]
     Active Substance: LISINOPRIL
     Indication: BLOOD PRESSURE ABNORMAL
     Dosage: 10 MILLIGRAM DAILY;
     Route: 065
     Dates: start: 201512, end: 20170407

REACTIONS (3)
  - Condition aggravated [Not Recovered/Not Resolved]
  - Vision blurred [Not Recovered/Not Resolved]
  - Blood pressure fluctuation [Unknown]

NARRATIVE: CASE EVENT DATE: 201611
